FAERS Safety Report 14534590 (Version 2)
Quarter: 2018Q1

REPORT INFORMATION
  Report Type: Spontaneous
  Country: CZ (occurrence: CZ)
  Receive Date: 20180215
  Receipt Date: 20180221
  Transmission Date: 20180509
  Serious: Yes (Death)
  Sender: FDA-Public Use
  Company Number: CZ-ROCHE-2072636

PATIENT

DRUGS (2)
  1. ACTILYSE [Suspect]
     Active Substance: ALTEPLASE
     Indication: CEREBROVASCULAR ACCIDENT
     Route: 042
  2. PRAXBIND [Suspect]
     Active Substance: IDARUCIZUMAB
     Indication: PROCOAGULANT THERAPY
     Route: 065

REACTIONS (5)
  - Ischaemic stroke [Fatal]
  - Coma [Fatal]
  - Basilar artery occlusion [Fatal]
  - Vertebral artery occlusion [Fatal]
  - Respiratory failure [Fatal]
